FAERS Safety Report 6726842-5 (Version None)
Quarter: 2010Q2

REPORT INFORMATION
  Report Type: 
  Country: None (occurrence: None)
  Receive Date: 20100517
  Receipt Date: 20100510
  Transmission Date: 20101027
  Serious: Yes (Hospitalization, Other)
  Sender: FDA-Public Use
  Company Number: US-BIOGENIDEC-2008BI001765

PATIENT
  Sex: Male
  Weight: 86 kg

DRUGS (6)
  1. TYSABRI [Suspect]
     Indication: MULTIPLE SCLEROSIS
     Route: 042
     Dates: start: 20070911, end: 20071106
  2. TYSABRI [Suspect]
     Route: 042
     Dates: start: 20070911, end: 20071106
  3. ZOLOFT [Concomitant]
     Route: 048
  4. PROTONIX [Concomitant]
     Route: 048
  5. BACLOFEN [Concomitant]
     Route: 048
  6. TYLENOL (CAPLET) [Concomitant]
     Route: 048

REACTIONS (5)
  - BACTERAEMIA [None]
  - BLINDNESS UNILATERAL [None]
  - CENTRAL NERVOUS SYSTEM LYMPHOMA [None]
  - EYE PAIN [None]
  - URINARY TRACT INFECTION [None]
